FAERS Safety Report 18150698 (Version 1)
Quarter: 2020Q3

REPORT INFORMATION
  Report Type: Spontaneous
  Country: FR (occurrence: FR)
  Receive Date: 20200814
  Receipt Date: 20200814
  Transmission Date: 20201103
  Serious: Yes (Other)
  Sender: FDA-Public Use
  Company Number: FR-MYLANLABS-2020M1070841

PATIENT
  Sex: Female

DRUGS (1)
  1. VORICONAZOLE MYLAN [Suspect]
     Active Substance: VORICONAZOLE
     Indication: PRODUCT USED FOR UNKNOWN INDICATION
     Dosage: UNK, FOR 2 WEEKS
     Dates: start: 201911

REACTIONS (3)
  - Cerebral cyst [Unknown]
  - Night blindness [Not Recovered/Not Resolved]
  - Vision blurred [Recovered/Resolved]

NARRATIVE: CASE EVENT DATE: 201911
